FAERS Safety Report 15276792 (Version 7)
Quarter: 2019Q3

REPORT INFORMATION
  Report Type: Spontaneous
  Country: US (occurrence: US)
  Receive Date: 20180814
  Receipt Date: 20190819
  Transmission Date: 20191004
  Serious: Yes (Hospitalization, Other)
  Sender: FDA-Public Use
  Company Number: US-PFIZER INC-2018323388

PATIENT
  Age: 81 Year
  Sex: Female

DRUGS (4)
  1. TIKOSYN [Suspect]
     Active Substance: DOFETILIDE
     Indication: ATRIAL FIBRILLATION
     Dosage: 250 MG, TWICE A DAY
     Route: 048
  2. TIKOSYN [Suspect]
     Active Substance: DOFETILIDE
     Indication: CARDIAC DISORDER
     Dosage: 125 MG, 2X/DAY
     Route: 048
     Dates: start: 2016
  3. CARDIZEM [Concomitant]
     Active Substance: DILTIAZEM HYDROCHLORIDE
     Dosage: 350 MG, DAILY
  4. TIKOSYN [Suspect]
     Active Substance: DOFETILIDE
     Dosage: 250 MG, DAILY

REACTIONS (9)
  - Renal failure [Not Recovered/Not Resolved]
  - Weight decreased [Recovered/Resolved]
  - Drug hypersensitivity [Unknown]
  - Overdose [Recovered/Resolved]
  - Protein total increased [Recovered/Resolved]
  - Kidney infection [Recovered/Resolved]
  - Urinary tract infection [Recovered/Resolved]
  - Bone swelling [Recovered/Resolved]
  - Gastric disorder [Recovered/Resolved]

NARRATIVE: CASE EVENT DATE: 2017
